FAERS Safety Report 5472132-0 (Version None)
Quarter: 2007Q3

REPORT INFORMATION
  Report Type: 
  Country: None (occurrence: None)
  Receive Date: 20070925
  Receipt Date: 20070911
  Transmission Date: 20080115
  Serious: Yes (Other)
  Sender: FDA-Public Use
  Company Number: IMP_03117_2007

PATIENT
  Sex: Female
  Weight: 56.6996 kg

DRUGS (4)
  1. BUDEPRION (300 MG, 300 MG) (NOT SPECIFIED) [Suspect]
     Indication: DEPRESSION
     Dosage: (300 MG QD ORAL), (150 MG QD ORAL)
     Route: 048
     Dates: start: 20070902
  2. BUDEPRION (300 MG, 300 MG) (NOT SPECIFIED) [Suspect]
     Indication: DEPRESSION
     Dosage: (300 MG QD ORAL), (150 MG QD ORAL)
     Route: 048
     Dates: start: 20070902
  3. ZOLOFT [Concomitant]
  4. TRAZODONE HCL [Concomitant]

REACTIONS (9)
  - ASTHENIA [None]
  - CONSTIPATION [None]
  - DECREASED APPETITE [None]
  - DEPRESSION [None]
  - FAECALOMA [None]
  - PHARMACEUTICAL PRODUCT COMPLAINT [None]
  - TOOTHACHE [None]
  - VISION BLURRED [None]
  - WEIGHT DECREASED [None]
